FAERS Safety Report 4334563-1 (Version None)
Quarter: 2004Q2

REPORT INFORMATION
  Report Type: 
  Country: None (occurrence: None)
  Receive Date: 20040407
  Receipt Date: 20040324
  Transmission Date: 20050107
  Serious: Yes (Other)
  Sender: FDA-Public Use
  Company Number: US-ROCHE-362892

PATIENT
  Age: 55 Year
  Sex: Female

DRUGS (4)
  1. VALIUM [Suspect]
     Indication: MENIERE'S DISEASE
     Route: 048
     Dates: start: 19780615, end: 19940615
  2. VALIUM [Suspect]
     Route: 048
     Dates: start: 19940615
  3. ANTIVERT [Concomitant]
     Indication: MENIERE'S DISEASE
     Route: 048
     Dates: start: 19840615
  4. SYNTHROID [Concomitant]
     Indication: HYPERTHYROIDISM
     Route: 048
     Dates: start: 19840615

REACTIONS (4)
  - BREAST CANCER [None]
  - DIZZINESS [None]
  - DRUG INEFFECTIVE [None]
  - NEUROPATHY [None]
